FAERS Safety Report 22138144 (Version 3)
Quarter: 2024Q1

REPORT INFORMATION
  Report Type: Report from Study
  Country: CO (occurrence: CO)
  Receive Date: 20230325
  Receipt Date: 20240216
  Transmission Date: 20240409
  Serious: Yes (Hospitalization, Other)
  Sender: FDA-Public Use
  Company Number: CO-002147023-PHHY2018CO030859

PATIENT
  Sex: Female
  Weight: 62 kg

DRUGS (3)
  1. ELTROMBOPAG OLAMINE [Suspect]
     Active Substance: ELTROMBOPAG OLAMINE
     Indication: Immune thrombocytopenia
     Dosage: 50 MG, QD
     Route: 048
  2. ELTROMBOPAG OLAMINE [Suspect]
     Active Substance: ELTROMBOPAG OLAMINE
     Dosage: UNK, QD
     Route: 048
  3. ELTROMBOPAG OLAMINE [Suspect]
     Active Substance: ELTROMBOPAG OLAMINE
     Dosage: 25 MG, QD
     Route: 048
     Dates: start: 20170101

REACTIONS (16)
  - Gingival bleeding [Unknown]
  - Fear [Unknown]
  - Malaise [Unknown]
  - Hand fracture [Unknown]
  - Road traffic accident [Unknown]
  - Cystocele [Unknown]
  - Headache [Unknown]
  - Nausea [Unknown]
  - Thrombosis [Unknown]
  - Epistaxis [Unknown]
  - Fall [Unknown]
  - Gait disturbance [Unknown]
  - Illness [Unknown]
  - Arthropathy [Unknown]
  - Platelet count decreased [Unknown]
  - Product dose omission issue [Unknown]
